FAERS Safety Report 19740756 (Version 1)
Quarter: 2021Q3

REPORT INFORMATION
  Report Type: Spontaneous
  Country: PT (occurrence: PT)
  Receive Date: 20210824
  Receipt Date: 20210824
  Transmission Date: 20211014
  Serious: Yes (Other)
  Sender: FDA-Public Use
  Company Number: PT-009507513-2108PRT005346

PATIENT
  Age: 71 Year
  Sex: Male

DRUGS (1)
  1. KEYTRUDA [Suspect]
     Active Substance: PEMBROLIZUMAB
     Indication: LUNG NEOPLASM MALIGNANT
     Dosage: 4TH CYCLE OF 400MG OF 6/6 WEEKS
     Route: 042
     Dates: start: 20210622, end: 20210622

REACTIONS (1)
  - Nephropathy toxic [Unknown]
